FAERS Safety Report 15549610 (Version 2)
Quarter: 2018Q4

REPORT INFORMATION
  Report Type: Spontaneous
  Country: US (occurrence: US)
  Receive Date: 20181025
  Receipt Date: 20181114
  Transmission Date: 20190205
  Serious: Yes (Hospitalization, Other)
  Sender: FDA-Public Use
  Company Number: US-AUROBINDO-AUR-APL-2018-051045

PATIENT
  Age: 29 Year
  Sex: Male

DRUGS (1)
  1. ACETAMINOPHEN. [Suspect]
     Active Substance: ACETAMINOPHEN
     Indication: PRODUCT USED FOR UNKNOWN INDICATION
     Dosage: UNK,HEAVY APAP USE
     Route: 065

REACTIONS (7)
  - Liver injury [Recovering/Resolving]
  - Drug abuse [Unknown]
  - Toxicity to various agents [Recovering/Resolving]
  - Hepatotoxicity [Recovering/Resolving]
  - Hepatic necrosis [Unknown]
  - Overdose [Unknown]
  - Abdominal pain [Unknown]
